FAERS Safety Report 5513840-2 (Version None)
Quarter: 2007Q4

REPORT INFORMATION
  Report Type: 
  Country: None (occurrence: None)
  Receive Date: 20071113
  Receipt Date: 20071105
  Transmission Date: 20080405
  Serious: Yes (Death, Life-Threatening, Hospitalization, Other)
  Sender: FDA-Public Use
  Company Number: US-BAYER-200712855BWH

PATIENT
  Age: 63 Year
  Sex: Male
  Weight: 80 kg

DRUGS (14)
  1. CIPRO [Suspect]
     Indication: PNEUMONIA
     Route: 048
     Dates: end: 20061201
  2. ASPIRIN [Concomitant]
     Route: 048
  3. ATENOLOL [Concomitant]
     Route: 048
     Dates: start: 20070211
  4. CITALOPRAM HYDROBROMIDE [Concomitant]
     Route: 048
  5. DIGOXIN [Concomitant]
     Route: 048
     Dates: start: 20070211
  6. DILTIAZEM [Concomitant]
     Route: 041
  7. DEXTROSE 5% [Concomitant]
     Route: 041
  8. LOVENOX [Concomitant]
     Dates: start: 20070211
  9. FUROSEMIDE [Concomitant]
  10. SPIRONOLACTONE [Concomitant]
     Dates: start: 20070211
  11. THIAMINE [Concomitant]
  12. MORPHINE [Concomitant]
  13. CELEXA [Concomitant]
     Route: 048
     Dates: start: 20070211
  14. CARDIZEM [Concomitant]
     Route: 041
     Dates: start: 20070211

REACTIONS (2)
  - LOSS OF CONSCIOUSNESS [None]
  - VENTRICULAR TACHYCARDIA [None]
